FAERS Safety Report 7611707-7 (Version None)
Quarter: 2011Q3

REPORT INFORMATION
  Report Type: 
  Country: None (occurrence: None)
  Receive Date: 20110715
  Receipt Date: 20110707
  Transmission Date: 20111222
  Serious: Yes (Death, Hospitalization)
  Sender: FDA-Public Use
  Company Number: KR-MERCK-1107KOR00017

PATIENT
  Age: 74 Year
  Sex: Female

DRUGS (4)
  1. VANCOMYCIN [Concomitant]
     Indication: INFECTIOUS PERITONITIS
     Route: 065
  2. PRIMAXIN [Suspect]
     Indication: INFECTIOUS PERITONITIS
     Route: 065
  3. AMIKACIN [Concomitant]
     Indication: INFECTIOUS PERITONITIS
     Route: 065
  4. PIPERACILLIN SODIUM AND TAZOBACTAM SODIUM [Concomitant]
     Indication: INFECTIOUS PERITONITIS
     Route: 065

REACTIONS (5)
  - SEPTIC SHOCK [None]
  - CELLULITIS [None]
  - PNEUMONIA ASPIRATION [None]
  - MENTAL STATUS CHANGES [None]
  - PYREXIA [None]
